FAERS Safety Report 12644316 (Version 1)
Quarter: 2016Q3

REPORT INFORMATION
  Report Type: Report from Study
  Country: US (occurrence: US)
  Receive Date: 20160811
  Receipt Date: 20160811
  Transmission Date: 20161109
  Serious: Yes (Other)
  Sender: FDA-Public Use
  Company Number: US-ROCHE-1808701

PATIENT

DRUGS (1)
  1. OSELTAMIVIR [Suspect]
     Active Substance: OSELTAMIVIR
     Indication: INFLUENZA
     Route: 048

REACTIONS (6)
  - Dehydration [Unknown]
  - Respiratory failure [Unknown]
  - Pneumonia [Unknown]
  - Asthma [Unknown]
  - Bronchiolitis [Unknown]
  - Diarrhoea [Unknown]
